FAERS Safety Report 22043433 (Version 1)
Quarter: 2023Q1

REPORT INFORMATION
  Report Type: Spontaneous
  Country: CN (occurrence: CN)
  Receive Date: 20230228
  Receipt Date: 20230228
  Transmission Date: 20230418
  Serious: Yes (Other)
  Sender: FDA-Public Use
  Company Number: CN-SUN PHARMACEUTICAL INDUSTRIES LTD-2023R1-380653

PATIENT
  Age: 54 Year
  Sex: Female

DRUGS (2)
  1. CARBOPLATIN [Suspect]
     Active Substance: CARBOPLATIN
     Indication: Mueller^s mixed tumour
     Dosage: 500 MILLIGRAM,FOUR CYCLES
     Route: 042
     Dates: start: 20171221, end: 20180329
  2. PACLITAXEL [Suspect]
     Active Substance: PACLITAXEL
     Indication: Mueller^s mixed tumour
     Dosage: 210 MILLIGRAM ,FOUR CYCLES
     Route: 042
     Dates: start: 20171221, end: 20180329

REACTIONS (1)
  - Myelosuppression [Unknown]
